FAERS Safety Report 8306454-2 (Version None)
Quarter: 2012Q2

REPORT INFORMATION
  Report Type: 
  Country: None (occurrence: None)
  Receive Date: 20120424
  Receipt Date: 20120411
  Transmission Date: 20120825
  Serious: Yes (Other)
  Sender: FDA-Public Use
  Company Number: GB-ACCORD-012744

PATIENT
  Age: 49 Year
  Sex: Female
  Weight: 70 kg

DRUGS (10)
  1. DOMPERIDONE [Suspect]
     Dosage: 20 MG, FOUR TIMES DAILY AND THEN PRN
     Route: 048
  2. DEXAMETHASONE [Suspect]
     Dosage: 20 MG, UNK
     Route: 042
  3. DOCUSATE [Concomitant]
     Dosage: 100 MG TO 200 MG
     Route: 048
  4. BIOTENE [Concomitant]
     Dosage: QDS
  5. CHLORPHENIRAMINE MALEATE [Suspect]
     Dosage: 10 MG, UNK
     Route: 042
  6. RANITIDINE [Suspect]
     Dosage: 50 MG, UNK
     Route: 042
  7. DEXAMETHASONE [Suspect]
     Dosage: 4 MG, BID
     Route: 048
  8. PACLITAXEL [Suspect]
     Indication: BREAST CANCER
     Dosage: 315 MG EVERY 2 WEEKS FOR 2 DOSES AND 300 MG FOR 2 DOSES
     Route: 042
     Dates: start: 20110524, end: 20110607
  9. GRANISETRON [Suspect]
     Dosage: 1 MG, BID
     Route: 048
  10. PEGFILGRASTIM [Suspect]
     Dosage: 6 MG, UNK
     Route: 058

REACTIONS (3)
  - CHEST DISCOMFORT [None]
  - FATIGUE [None]
  - DYSPNOEA [None]
